FAERS Safety Report 13936362 (Version 1)
Quarter: 2017Q3

REPORT INFORMATION
  Report Type: Spontaneous
  Country: FR (occurrence: FR)
  Receive Date: 20170905
  Receipt Date: 20170905
  Transmission Date: 20171127
  Serious: Yes (Hospitalization)
  Sender: FDA-Public Use
  Company Number: FR-GLAXOSMITHKLINE-FR2017GSK136785

PATIENT
  Age: 18 Year
  Sex: Male

DRUGS (9)
  1. ESOMEPRAZOLE [Suspect]
     Active Substance: ESOMEPRAZOLE
     Indication: HELICOBACTER INFECTION
     Dosage: 40 MG, BID
     Route: 048
     Dates: start: 20170731, end: 20170823
  2. ETHAMBUTOL [Suspect]
     Active Substance: ETHAMBUTOL HYDROCHLORIDE
     Indication: TUBERCULOSIS
     Dosage: UNK
     Route: 048
     Dates: start: 20170731, end: 20170823
  3. RIFATER [Suspect]
     Active Substance: ISONIAZID\PYRAZINAMIDE\RIFAMPIN
     Indication: TUBERCULOSIS
     Dosage: UNK
     Route: 048
     Dates: start: 20170731, end: 20170823
  4. DOLIPRANE [Suspect]
     Active Substance: ACETAMINOPHEN
     Indication: PRODUCT USED FOR UNKNOWN INDICATION
     Dosage: 2 DF, TID
     Route: 048
     Dates: start: 20170731, end: 20170823
  5. CLARITHROMYCINE [Suspect]
     Active Substance: CLARITHROMYCIN
     Indication: HELICOBACTER INFECTION
     Dosage: 500 MG, BID
     Route: 048
     Dates: start: 20170731, end: 20170823
  6. PRINCI B [Suspect]
     Active Substance: PYRIDOXINE\THIAMINE
     Indication: PRODUCT USED FOR UNKNOWN INDICATION
     Dosage: 2 DF, BID
     Route: 048
     Dates: start: 20170731, end: 20170823
  7. AMOXICILLINE [Suspect]
     Active Substance: AMOXICILLIN
     Indication: HELICOBACTER INFECTION
     Dosage: 1 G, BID
     Route: 048
     Dates: start: 20170731, end: 20170823
  8. METRONIDAZOLE. [Suspect]
     Active Substance: METRONIDAZOLE
     Indication: HELICOBACTER INFECTION
     Dosage: 500 MG, BID
     Route: 048
     Dates: start: 20170731, end: 20170823
  9. LANSOPRAZOLE. [Suspect]
     Active Substance: LANSOPRAZOLE
     Indication: HELICOBACTER INFECTION
     Dosage: UNK
     Route: 048
     Dates: start: 20170731, end: 20170823

REACTIONS (4)
  - Nausea [Unknown]
  - Liver disorder [Unknown]
  - Asthenia [Unknown]
  - Vomiting [Unknown]

NARRATIVE: CASE EVENT DATE: 20170820
